FAERS Safety Report 11951093 (Version 1)
Quarter: 2016Q1

REPORT INFORMATION
  Report Type: Spontaneous
  Country: FR (occurrence: FR)
  Receive Date: 20160126
  Receipt Date: 20160126
  Transmission Date: 20160526
  Serious: Yes (Hospitalization, Other)
  Sender: FDA-Public Use
  Company Number: FR-PFIZER INC-2016036815

PATIENT
  Age: 31 Year
  Sex: Male

DRUGS (8)
  1. IMUREL /00001501/ [Concomitant]
     Active Substance: AZATHIOPRINE SODIUM
     Dosage: 6 DF, DAILY
  2. COVERAM [Concomitant]
     Active Substance: AMLODIPINE\PERINDOPRIL
     Dosage: 1 DF, DAILY (10 MG/10 MG)
  3. DIFFU K [Concomitant]
     Active Substance: POTASSIUM CHLORIDE
     Dosage: 6 DF, DAILY
  4. ATENOLOL. [Concomitant]
     Active Substance: ATENOLOL
     Dosage: 10 MG, DAILY
  5. LEVOTHYROX [Concomitant]
     Active Substance: LEVOTHYROXINE
     Dosage: 6 DF, DAILY
  6. PREVISCAN /00789001/ [Concomitant]
     Active Substance: FLUINDIONE
     Dosage: 6 DF, DAILY
  7. EUPANTOL [Suspect]
     Active Substance: PANTOPRAZOLE SODIUM
     Dosage: 40 MG, DAILY
     Route: 048
     Dates: start: 2009
  8. MAGNE B6 /00869101/ [Concomitant]
     Dosage: 6 DF, DAILY

REACTIONS (12)
  - Asthenia [Unknown]
  - Hypertonia [Unknown]
  - Acute kidney injury [Recovering/Resolving]
  - Hypokalaemia [Unknown]
  - Agitation [Unknown]
  - Hypocalciuria [Unknown]
  - Hypomagnesaemia [Not Recovered/Not Resolved]
  - Confusional state [Not Recovered/Not Resolved]
  - Aggression [Unknown]
  - Diarrhoea [Unknown]
  - Hypocalcaemia [Not Recovered/Not Resolved]
  - Nervous system disorder [Unknown]

NARRATIVE: CASE EVENT DATE: 200901
